FAERS Safety Report 12631852 (Version 2)
Quarter: 2016Q3

REPORT INFORMATION
  Report Type: Spontaneous
  Country: US (occurrence: US)
  Receive Date: 20160808
  Receipt Date: 20160808
  Transmission Date: 20161109
  Serious: No
  Sender: FDA-Public Use
  Company Number: US-BEH-2016061231

PATIENT
  Age: 65 Year
  Sex: Female
  Weight: 94 kg

DRUGS (27)
  1. LASIX [Concomitant]
     Active Substance: FUROSEMIDE
  2. SUPER B COMPLEX [Concomitant]
     Active Substance: CYANOCOBALAMIN\DEXPANTHENOL\NIACINAMIDE\PYRIDOXINE HYDROCHLORIDE\RIBOFLAVIN 5^-PHOSPHATE SODIUM\THIAMINE HYDROCHLORIDE\VITAMIN B COMPLEX
  3. TURMERIC [Concomitant]
     Active Substance: TURMERIC
  4. BENADRYL [Concomitant]
     Active Substance: DIPHENHYDRAMINE HYDROCHLORIDE
  5. MULTIVITAMINS [Concomitant]
     Active Substance: VITAMINS
  6. VITAMIN D [Concomitant]
     Active Substance: CHOLECALCIFEROL
  7. QVAR [Concomitant]
     Active Substance: BECLOMETHASONE DIPROPIONATE
  8. ALVESCO [Concomitant]
     Active Substance: CICLESONIDE
  9. HIZENTRA [Suspect]
     Active Substance: HUMAN IMMUNOGLOBULIN G
     Route: 058
  10. FISH OIL [Concomitant]
     Active Substance: FISH OIL
  11. HIZENTRA [Suspect]
     Active Substance: HUMAN IMMUNOGLOBULIN G
     Route: 058
     Dates: start: 20150914
  12. COREG [Concomitant]
     Active Substance: CARVEDILOL
  13. PLAVIX [Concomitant]
     Active Substance: CLOPIDOGREL BISULFATE
  14. ACETAMINOPHEN. [Concomitant]
     Active Substance: ACETAMINOPHEN
  15. DIPHENHYDRAMINE. [Concomitant]
     Active Substance: DIPHENHYDRAMINE
  16. APIDRA [Concomitant]
     Active Substance: INSULIN GLULISINE
  17. VITAMIN E [Concomitant]
     Active Substance: .ALPHA.-TOCOPHEROL
  18. LOSARTAN. [Concomitant]
     Active Substance: LOSARTAN
  19. FIBRE [Concomitant]
  20. LIDOCAINE. [Concomitant]
     Active Substance: LIDOCAINE
  21. GEMFIBROZIL. [Concomitant]
     Active Substance: GEMFIBROZIL
  22. MAGNESIUM [Concomitant]
     Active Substance: MAGNESIUM
  23. HIZENTRA [Suspect]
     Active Substance: HUMAN IMMUNOGLOBULIN G
     Route: 058
  24. SYMBICORT [Concomitant]
     Active Substance: BUDESONIDE\FORMOTEROL FUMARATE DIHYDRATE
  25. GRAPESEED OIL [Concomitant]
  26. EPIPEN [Concomitant]
     Active Substance: EPINEPHRINE
  27. ZETIA [Concomitant]
     Active Substance: EZETIMIBE

REACTIONS (2)
  - Bacterial infection [Unknown]
  - Fungal infection [Unknown]

NARRATIVE: CASE EVENT DATE: 20151215
